FAERS Safety Report 11871561 (Version 3)
Quarter: 2016Q1

REPORT INFORMATION
  Report Type: Spontaneous
  Country: US (occurrence: US)
  Receive Date: 20151228
  Receipt Date: 20160225
  Transmission Date: 20160526
  Serious: Yes (Other)
  Sender: FDA-Public Use
  Company Number: US-ASTELLAS-2015US048063

PATIENT
  Sex: Female

DRUGS (1)
  1. MYRBETRIQ [Suspect]
     Active Substance: MIRABEGRON
     Indication: NEUROGENIC BLADDER
     Dosage: UNK UNK, ONCE DAILY
     Route: 065

REACTIONS (5)
  - Nerve injury [Recovering/Resolving]
  - Drug ineffective [Not Recovered/Not Resolved]
  - Urinary incontinence [Recovering/Resolving]
  - Urinary tract infection [Unknown]
  - Cystitis [Recovering/Resolving]
